FAERS Safety Report 17865540 (Version 1)
Quarter: 2020Q2

REPORT INFORMATION
  Report Type: Spontaneous
  Country: US (occurrence: US)
  Receive Date: 20200604
  Receipt Date: 20200604
  Transmission Date: 20200714
  Serious: Yes (Hospitalization)
  Sender: FDA-Public Use
  Company Number: None

PATIENT
  Age: 63 Year
  Sex: Female

DRUGS (21)
  1. AZITHROMYCIN ANHYDROUS. [Suspect]
     Active Substance: AZITHROMYCIN ANHYDROUS
  2. FLUCONAZOLE. [Suspect]
     Active Substance: FLUCONAZOLE
  3. FOLIC ACID. [Suspect]
     Active Substance: FOLIC ACID
  4. HYDROMORPHON [Suspect]
     Active Substance: HYDROMORPHONE
  5. RIZATRIPTAN. [Suspect]
     Active Substance: RIZATRIPTAN
  6. TESTOSTERONE CRE [Concomitant]
  7. DIAZEPAM. [Suspect]
     Active Substance: DIAZEPAM
  8. OMEPRAZOLE. [Suspect]
     Active Substance: OMEPRAZOLE
  9. TEMAZEPAM. [Suspect]
     Active Substance: TEMAZEPAM
  10. XELJANZ [Suspect]
     Active Substance: TOFACITINIB CITRATE
     Indication: PSORIATIC ARTHROPATHY
     Dosage: ?          OTHER DOSE:1 TAB;?
     Route: 048
     Dates: start: 20190809
  11. ESTRADIOL. [Suspect]
     Active Substance: ESTRADIOL
  12. METHOTREXATE. [Suspect]
     Active Substance: METHOTREXATE
  13. ROSUVASTATIN. [Suspect]
     Active Substance: ROSUVASTATIN
  14. LOSARTAN POT [Suspect]
     Active Substance: LOSARTAN POTASSIUM
  15. MODAFINIL. [Suspect]
     Active Substance: MODAFINIL
  16. CELECOXIB. [Suspect]
     Active Substance: CELECOXIB
  17. CYCLOBENZAPR [Suspect]
     Active Substance: CYCLOBENZAPRINE
  18. GABAPENTIN. [Suspect]
     Active Substance: GABAPENTIN
  19. METHYLPRED [Suspect]
     Active Substance: METHYLPREDNISOLONE
  20. METOPROLOL SUCCINATE. [Suspect]
     Active Substance: METOPROLOL SUCCINATE
  21. ONDANSETRON [Suspect]
     Active Substance: ONDANSETRON

REACTIONS (2)
  - Therapy interrupted [None]
  - Surgery [None]

NARRATIVE: CASE EVENT DATE: 20200604
